FAERS Safety Report 4830618-3 (Version None)
Quarter: 2005Q4

REPORT INFORMATION
  Report Type: 
  Country: None (occurrence: None)
  Receive Date: 20051114
  Receipt Date: 20051102
  Transmission Date: 20060501
  Serious: Yes (Other)
  Sender: FDA-Public Use
  Company Number: 2005151207

PATIENT
  Age: 45 Year
  Sex: Female
  Weight: 65 kg

DRUGS (2)
  1. MISOPROSTOL [Suspect]
     Indication: ILL-DEFINED DISORDER
     Dosage: (200 MCG,), ORAL
     Route: 048
     Dates: start: 20050902, end: 20050916
  2. DICLOFENAC SODIUM [Suspect]
     Indication: ARTHRITIS
     Dosage: (50 MG,), ORAL
     Route: 048
     Dates: start: 20050902, end: 20050916

REACTIONS (1)
  - METRORRHAGIA [None]
